FAERS Safety Report 6264426-6 (Version None)
Quarter: 2009Q3

REPORT INFORMATION
  Report Type: 
  Country: None (occurrence: None)
  Receive Date: 20090710
  Receipt Date: 20090701
  Transmission Date: 20100115
  Serious: Yes (Other)
  Sender: FDA-Public Use
  Company Number: B0583138A

PATIENT
  Age: 30 Year
  Sex: Female

DRUGS (1)
  1. EPOPROSTENOL [Suspect]
     Indication: PULMONARY ARTERIAL HYPERTENSION

REACTIONS (3)
  - GOITRE [None]
  - HYPERTHYROIDISM [None]
  - THYROXINE INCREASED [None]
